FAERS Safety Report 5413594-4 (Version None)
Quarter: 2007Q3

REPORT INFORMATION
  Report Type: 
  Country: None (occurrence: None)
  Receive Date: 20070810
  Receipt Date: 20070803
  Transmission Date: 20080115
  Serious: Yes (Other)
  Sender: FDA-Public Use
  Company Number: 2007328116

PATIENT
  Age: 9 Year
  Sex: Female

DRUGS (1)
  1. BENADRYL [Suspect]
     Indication: INSOMNIA
     Dosage: TWO TEASPOONS EVERY NIGHT, ORAL
     Route: 048

REACTIONS (1)
  - DRUG DEPENDENCE [None]
